FAERS Safety Report 19960139 (Version 1)
Quarter: 2021Q4

REPORT INFORMATION
  Report Type: Spontaneous
  Country: US (occurrence: US)
  Receive Date: 20211015
  Receipt Date: 20211015
  Transmission Date: 20220303
  Serious: No
  Sender: FDA-Public Use
  Company Number: US-EVOKE PHARMA, INC.-2021EVO000078

PATIENT

DRUGS (8)
  1. GIMOTI [Suspect]
     Active Substance: METOCLOPRAMIDE HYDROCHLORIDE
     Indication: Impaired gastric emptying
     Dosage: 1 SPRAY, QID
     Route: 045
     Dates: start: 202106, end: 202106
  2. GIMOTI [Suspect]
     Active Substance: METOCLOPRAMIDE HYDROCHLORIDE
     Indication: Gastric hypomotility
  3. VITAMINS [Concomitant]
     Active Substance: VITAMINS
     Indication: Product used for unknown indication
     Dosage: UNK
  4. LINZESS [Concomitant]
     Active Substance: LINACLOTIDE
     Indication: Product used for unknown indication
     Dosage: UNK, QD
  5. PRAZOSIN [Concomitant]
     Active Substance: PRAZOSIN
     Indication: Nightmare
     Dosage: UNK
  6. TOPAMAX [Concomitant]
     Active Substance: TOPIRAMATE
     Indication: Pain
     Dosage: UNK
  7. TOPAMAX [Concomitant]
     Active Substance: TOPIRAMATE
     Indication: Binge eating
  8. TRAZODONE [Concomitant]
     Active Substance: TRAZODONE HYDROCHLORIDE
     Indication: Sleep disorder
     Dosage: UNK

REACTIONS (1)
  - Breast pain [Recovered/Resolved]

NARRATIVE: CASE EVENT DATE: 20210601
